FAERS Safety Report 15586786 (Version 1)
Quarter: 2018Q4

REPORT INFORMATION
  Report Type: Spontaneous
  Country: US (occurrence: US)
  Receive Date: 20181101
  Receipt Date: 20181101
  Transmission Date: 20190205
  Serious: No
  Sender: FDA-Public Use
  Company Number: None

PATIENT
  Age: 68 Year
  Sex: Female
  Weight: 96.16 kg

DRUGS (1)
  1. BENLYSTA [Suspect]
     Active Substance: BELIMUMAB
     Indication: SYSTEMIC LUPUS ERYTHEMATOSUS
     Route: 058
     Dates: start: 201809

REACTIONS (7)
  - Urinary tract infection [None]
  - Headache [None]
  - Fatigue [None]
  - Pruritus [None]
  - Poor quality sleep [None]
  - Knee operation [None]
  - Insomnia [None]
